FAERS Safety Report 17083345 (Version 1)
Quarter: 2019Q4

REPORT INFORMATION
  Report Type: Spontaneous
  Country: DE (occurrence: DE)
  Receive Date: 20191127
  Receipt Date: 20191127
  Transmission Date: 20200122
  Serious: Yes (Death, Hospitalization, Other)
  Sender: FDA-Public Use
  Company Number: DE-MYLANLABS-2019M1115282

PATIENT
  Age: 47 Year
  Sex: Female

DRUGS (28)
  1. LEVETIRACETAM. [Suspect]
     Active Substance: LEVETIRACETAM
     Indication: EPILEPSY
     Dosage: 3000 MILLIGRAM, QD
     Route: 065
  2. DIENOVEL [Concomitant]
     Active Substance: DIENOGEST\ETHINYL ESTRADIOL
     Indication: PRODUCT USED FOR UNKNOWN INDICATION
     Dosage: UNK UNK, QD
     Route: 065
  3. VIMPAT [Suspect]
     Active Substance: LACOSAMIDE
     Dosage: 300 MILLIGRAM, 3X/DAY (TID)
     Route: 065
     Dates: start: 201705
  4. DIAZEPAM DESITIN [Concomitant]
     Indication: SEIZURE
     Dosage: 10 MILLIGRAM
     Route: 054
  5. BUCCOLAM [Concomitant]
     Active Substance: MIDAZOLAM HYDROCHLORIDE
     Indication: SEIZURE
     Dosage: 10 MILLIGRAM, UNK
     Route: 065
  6. DEKRISTOL [Concomitant]
     Active Substance: CHOLECALCIFEROL
     Indication: PRODUCT USED FOR UNKNOWN INDICATION
     Dosage: UNK, Q2W
     Route: 065
  7. MIDAZOLAM [Concomitant]
     Active Substance: MIDAZOLAM HYDROCHLORIDE
     Indication: PRODUCT USED FOR UNKNOWN INDICATION
     Dosage: UNK
     Route: 065
  8. NOVAMINSULFON [Concomitant]
     Active Substance: METAMIZOLE
     Indication: PAIN
     Dosage: UNK, QD
  9. COLECALCIFEROL [Concomitant]
     Active Substance: CHOLECALCIFEROL
     Indication: PRODUCT USED FOR UNKNOWN INDICATION
  10. VIMPAT [Suspect]
     Active Substance: LACOSAMIDE
     Dosage: 100 MG TABLET 2 IN MORNING 1 AT NOON AND 1 AT NIGHT
     Route: 065
     Dates: start: 201803
  11. MELPERONE [Concomitant]
     Active Substance: MELPERONE
     Dosage: UNK
     Route: 065
  12. FERROSANOL [Concomitant]
     Active Substance: FERROUS GLUCONATE
     Indication: PRODUCT USED FOR UNKNOWN INDICATION
     Dosage: UNK
     Route: 065
  13. PANTOZ [Concomitant]
     Indication: PRODUCT USED FOR UNKNOWN INDICATION
     Dosage: 20 MILLIGRAM, ONCE DAILY (QD)
     Route: 065
  14. LEVETIRACETAM. [Suspect]
     Active Substance: LEVETIRACETAM
     Dosage: 2000 MILLIGRAM, QD
     Route: 065
     Dates: start: 201704
  15. CHLORPROTHIXEN                     /00012102/ [Concomitant]
     Active Substance: CHLORPROTHIXENE HYDROCHLORIDE
     Indication: PRODUCT USED FOR UNKNOWN INDICATION
     Dosage: UNK, QD
     Route: 065
  16. VIMPAT [Suspect]
     Active Substance: LACOSAMIDE
     Indication: EPILEPSY
     Dosage: 400 MILLIGRAM, QD
     Route: 065
     Dates: start: 201710
  17. BRIVIACT [Suspect]
     Active Substance: BRIVARACETAM
     Dosage: 100 MILLIGRAM, 2X/DAY (BID)
     Route: 065
     Dates: start: 201803
  18. DORMICUM                           /00634102/ [Concomitant]
     Active Substance: MIDAZOLAM MALEATE
     Indication: PAIN
     Dosage: 7.5 MILLIGRAM, UNK
     Route: 065
  19. DIAZEPAM. [Concomitant]
     Active Substance: DIAZEPAM
     Indication: PRODUCT USED FOR UNKNOWN INDICATION
  20. BRIVIACT [Suspect]
     Active Substance: BRIVARACETAM
     Indication: EPILEPSY
     Dosage: 50 MILLIGRAM, 2X/DAY (BID)
     Route: 065
     Dates: start: 20180323
  21. OXCARBAZEPINE. [Concomitant]
     Active Substance: OXCARBAZEPINE
     Indication: PRODUCT USED FOR UNKNOWN INDICATION
     Dosage: UNK
     Route: 065
  22. LEVETIRACETAM. [Suspect]
     Active Substance: LEVETIRACETAM
     Dosage: 500 MILLIGRAM, 2X/DAY (BID)
     Route: 065
  23. VIMPAT [Suspect]
     Active Substance: LACOSAMIDE
     Dosage: 300 MILLIGRAM, 3X/DAY (TID)
     Route: 065
  24. BRIVIACT [Suspect]
     Active Substance: BRIVARACETAM
     Dosage: 25 MILLIGRAM, 2X/DAY (BID)
     Route: 065
  25. BRIVIACT [Suspect]
     Active Substance: BRIVARACETAM
     Dosage: 50 MG AND 25 MG, 2X/DAY (BID)
     Route: 065
     Dates: start: 20180316
  26. TAVOR (LORAZEPAM) [Concomitant]
     Active Substance: LORAZEPAM
     Indication: SEIZURE
     Dosage: 2.5 MILLIGRAM, UNK
     Route: 002
  27. PANTOPRAZOLE [Concomitant]
     Active Substance: PANTOPRAZOLE
     Indication: PRODUCT USED FOR UNKNOWN INDICATION
     Dosage: UNK
     Route: 065
  28. BACLOFEN DURA [Concomitant]
     Indication: PRODUCT USED FOR UNKNOWN INDICATION
     Dosage: 10 MILLIGRAM, 3X/DAY (TID)
     Route: 065

REACTIONS (4)
  - Seizure [Fatal]
  - Off label use [Unknown]
  - Partial seizures [Unknown]
  - Drug ineffective [Unknown]

NARRATIVE: CASE EVENT DATE: 2018
